FAERS Safety Report 5177090-4 (Version None)
Quarter: 2006Q4

REPORT INFORMATION
  Report Type: 
  Country: None (occurrence: None)
  Receive Date: 20061207
  Receipt Date: 20061127
  Transmission Date: 20070319
  Serious: Yes (Hospitalization)
  Sender: FDA-Public Use
  Company Number: 2006145989

PATIENT
  Age: 39 Year
  Sex: Female

DRUGS (1)
  1. HYDROCORTISONE SODIUM SUCCINATE [Suspect]
     Indication: PREMEDICATION
     Dosage: 100 MG (100 MG, STAT), INTRAVENOUS
     Route: 042
     Dates: start: 20060919, end: 20060920

REACTIONS (2)
  - CHEST DISCOMFORT [None]
  - RASH [None]
